FAERS Safety Report 9799103 (Version 1)
Quarter: 2014Q1

REPORT INFORMATION
  Report Type: Spontaneous
  Country: JP (occurrence: None)
  Receive Date: 20140102
  Receipt Date: 20140102
  Transmission Date: 20141002
  Serious: Yes (Hospitalization)
  Sender: FDA-Public Use
  Company Number: SYM-2013-14325

PATIENT
  Age: 72 Year
  Sex: Female

DRUGS (3)
  1. ZOVIRAX [Suspect]
     Route: 048
     Dates: start: 20131128, end: 20131201
  2. CALONAL (PARACETAMOL) (PARACETAMOL) [Concomitant]
  3. VIDARABINE (VIDARABINE) (VIDARABINE) [Concomitant]

REACTIONS (1)
  - Toxic encephalopathy [None]
